FAERS Safety Report 8540170-7 (Version None)
Quarter: 2012Q2

REPORT INFORMATION
  Report Type: 
  Country: None (occurrence: None)
  Receive Date: 20120412
  Receipt Date: 20090930
  Transmission Date: 20120825
  Serious: Yes (Other)
  Sender: FDA-Public Use
  Company Number: PHEH2009US13008

PATIENT
  Sex: Female

DRUGS (4)
  1. AREDIA [Suspect]
     Indication: BONE DENSITY DECREASED
  2. AREDIA [Suspect]
     Indication: OSTEOPOROSIS
  3. ZOMETA [Suspect]
     Indication: BONE DENSITY DECREASED
  4. ZOMETA [Suspect]
     Indication: OSTEOPOROSIS

REACTIONS (3)
  - INJURY [None]
  - PAIN [None]
  - OSTEONECROSIS [None]
